FAERS Safety Report 5097579-6 (Version None)
Quarter: 2006Q3

REPORT INFORMATION
  Report Type: 
  Country: None (occurrence: None)
  Receive Date: 20060901
  Receipt Date: 20060821
  Transmission Date: 20061208
  Serious: Yes (Death, Life-Threatening, Hospitalization)
  Sender: FDA-Public Use
  Company Number: 112223ISR

PATIENT
  Age: 63 Year
  Sex: Female

DRUGS (10)
  1. PREDNISOLONE [Suspect]
     Dosage: 300 MILLIGRAM, ORAL
     Route: 048
     Dates: start: 20051118, end: 20060122
  2. HYDROCORTISONE [Suspect]
     Dosage: 225 MILLIGRAM ONCE, ORAL
     Route: 048
     Dates: start: 20051208, end: 20060122
  3. REMICADE [Suspect]
     Dosage: INTRAVENOUS (NOS)
     Route: 042
     Dates: start: 20051215, end: 20051215
  4. ATENOLOL [Concomitant]
  5. CALCICHEW-D3 [Concomitant]
  6. HEPARIN-FRACTION, SODIUM SALT [Concomitant]
  7. ALENDRONATE SODIUM [Concomitant]
  8. QUININE SULFATE [Concomitant]
  9. POTASSIUM CHLORIDE [Concomitant]
  10. SIMVASTATIN [Concomitant]

REACTIONS (5)
  - ARTHRITIS [None]
  - ISCHAEMIC STROKE [None]
  - PEPTIC ULCER HAEMORRHAGE [None]
  - PNEUMONIA STAPHYLOCOCCAL [None]
  - SEPSIS [None]
